FAERS Safety Report 5920835-3 (Version None)
Quarter: 2008Q4

REPORT INFORMATION
  Report Type: 
  Country: None (occurrence: None)
  Receive Date: 20081016
  Receipt Date: 20081009
  Transmission Date: 20090506
  Serious: Yes (Death)
  Sender: FDA-Public Use
  Company Number: US-MERCK-0810USA01785

PATIENT
  Age: 46 Year
  Sex: Male

DRUGS (3)
  1. STROMECTOL [Suspect]
     Indication: STRONGYLOIDIASIS
     Route: 065
  2. ALBENDAZOLE [Suspect]
     Route: 065
  3. CORTICOSTEROIDS (UNSPECIFIED) [Suspect]
     Route: 048

REACTIONS (2)
  - DRUG INEFFECTIVE [None]
  - STRONGYLOIDIASIS [None]
